FAERS Safety Report 9063959 (Version 2)
Quarter: 2016Q2

REPORT INFORMATION
  Report Type: Report from Study
  Country: BR (occurrence: BR)
  Receive Date: 20130213
  Receipt Date: 20160413
  Transmission Date: 20160815
  Serious: Yes (Death, Hospitalization)
  Sender: FDA-Public Use
  Company Number: BR-ROCHE-1189958

PATIENT
  Sex: Female
  Weight: 58 kg

DRUGS (12)
  1. PROLOPA [Concomitant]
     Active Substance: BENSERAZIDE\LEVODOPA
  2. MABTHERA [Suspect]
     Active Substance: RITUXIMAB
     Route: 065
     Dates: start: 201103
  3. MABTHERA [Suspect]
     Active Substance: RITUXIMAB
     Route: 065
     Dates: start: 201110
  4. METHOTREXATE [Concomitant]
     Active Substance: METHOTREXATE
  5. CALDE [Concomitant]
     Active Substance: CALCIUM CARBONATE\CHOLECALCIFEROL
  6. MABTHERA [Suspect]
     Active Substance: RITUXIMAB
     Indication: RHEUMATOID ARTHRITIS
     Route: 065
     Dates: start: 20100901, end: 20141110
  7. MAREVAN [Concomitant]
     Active Substance: WARFARIN SODIUM
  8. FOLIC ACID. [Concomitant]
     Active Substance: FOLIC ACID
  9. MABTHERA [Suspect]
     Active Substance: RITUXIMAB
     Route: 065
     Dates: start: 201206
  10. BIPERIDEN [Concomitant]
     Active Substance: BIPERIDEN
  11. ALENDRONATE [Concomitant]
     Active Substance: ALENDRONATE SODIUM
  12. DEPURA [Concomitant]
     Active Substance: CHOLECALCIFEROL

REACTIONS (2)
  - Sepsis [Fatal]
  - Pulmonary embolism [Recovered/Resolved]
